FAERS Safety Report 25094208 (Version 1)
Quarter: 2025Q1

REPORT INFORMATION
  Report Type: Spontaneous
  Country: US (occurrence: None)
  Receive Date: 20250318
  Receipt Date: 20250318
  Transmission Date: 20250409
  Serious: Yes (Other)
  Sender: FDA-CTU
  Company Number: None

PATIENT
  Age: 36 Year
  Sex: Female
  Weight: 61.8 kg

DRUGS (3)
  1. MONOFERRIC [Suspect]
     Active Substance: FERRIC DERISOMALTOSE
     Indication: Iron deficiency anaemia
     Route: 042
     Dates: start: 20250305, end: 20250305
  2. Vitamin D2 1,250 mcg PO weekly [Concomitant]
  3. Progesterone 200 mg PO daily [Concomitant]

REACTIONS (6)
  - Chest pain [None]
  - Back pain [None]
  - Hyperhidrosis [None]
  - Flushing [None]
  - Nausea [None]
  - Infusion related reaction [None]

NARRATIVE: CASE EVENT DATE: 20250305
